FAERS Safety Report 5529250-8 (Version None)
Quarter: 2007Q4

REPORT INFORMATION
  Report Type: 
  Country: None (occurrence: None)
  Receive Date: 20071129
  Receipt Date: 20070906
  Transmission Date: 20080405
  Serious: No
  Sender: FDA-Public Use
  Company Number: A0673424A

PATIENT
  Age: 53 Year
  Sex: Female

DRUGS (3)
  1. WELLBUTRIN SR [Suspect]
     Indication: DEPRESSION
     Dosage: 100MG TWICE PER DAY
     Route: 048
  2. WELLBUTRIN XL [Suspect]
     Indication: DEPRESSION
     Dosage: 150MG PER DAY
     Route: 048
     Dates: start: 20070301
  3. NO CONCURRENT MEDICATIONS [Concomitant]

REACTIONS (7)
  - EAR DISCOMFORT [None]
  - FEELING ABNORMAL [None]
  - HEARING IMPAIRED [None]
  - PALPITATIONS [None]
  - POOR QUALITY SLEEP [None]
  - THINKING ABNORMAL [None]
  - TINNITUS [None]
